FAERS Safety Report 6524232-1 (Version None)
Quarter: 2009Q4

REPORT INFORMATION
  Report Type: 
  Country: None (occurrence: None)
  Receive Date: 20091230
  Receipt Date: 20091230
  Transmission Date: 20100525
  Serious: Yes (Life-Threatening, Other)
  Sender: FDA-Public Use
  Company Number: None

PATIENT
  Sex: Female
  Weight: 89.8122 kg

DRUGS (1)
  1. ZOLPIDEM [Suspect]
     Dosage: 1 TABLET AT BEDTIME PO
     Route: 048
     Dates: start: 20090923, end: 20090923

REACTIONS (2)
  - AMNESIA [None]
  - READING DISORDER [None]
